FAERS Safety Report 20771495 (Version 2)
Quarter: 2022Q2

REPORT INFORMATION
  Report Type: Spontaneous
  Country: US (occurrence: US)
  Receive Date: 20220430
  Receipt Date: 20220504
  Transmission Date: 20220721
  Serious: No
  Sender: FDA-Public Use
  Company Number: US-UNITED THERAPEUTICS-UNT-2022-009106

PATIENT
  Age: 55 Year
  Sex: Female
  Weight: 47.166 kg

DRUGS (2)
  1. REMODULIN [Suspect]
     Active Substance: TREPROSTINIL
     Indication: Pulmonary arterial hypertension
     Dosage: UNK, CONTINUING
     Route: 058
     Dates: start: 20210908
  2. REMODULIN [Suspect]
     Active Substance: TREPROSTINIL
     Dosage: 0.0245 ?G/KG, CONTINUING
     Route: 058

REACTIONS (4)
  - Exposure via skin contact [Unknown]
  - Accidental exposure to product [Unknown]
  - Product leakage [Unknown]
  - Product odour abnormal [Unknown]

NARRATIVE: CASE EVENT DATE: 20220401
